FAERS Safety Report 6252918-5 (Version None)
Quarter: 2009Q3

REPORT INFORMATION
  Report Type: 
  Country: None (occurrence: None)
  Receive Date: 20090701
  Receipt Date: 20090624
  Transmission Date: 20100115
  Serious: Yes (Other)
  Sender: FDA-Public Use
  Company Number: A0793508A

PATIENT
  Age: 67 Year
  Sex: Male

DRUGS (2)
  1. VERAMYST [Suspect]
     Indication: MULTIPLE ALLERGIES
     Dosage: 1SPR PER DAY
     Route: 045
     Dates: start: 20070101
  2. UNSPECIFIED MEDICATION [Concomitant]

REACTIONS (5)
  - ABNORMAL SENSATION IN EYE [None]
  - CATARACT [None]
  - EYE DISORDER [None]
  - EYE IRRITATION [None]
  - OCULAR HYPERAEMIA [None]
